FAERS Safety Report 9464862 (Version 1)
Quarter: 2013Q3

REPORT INFORMATION
  Report Type: Spontaneous
  Country: US (occurrence: US)
  Receive Date: 20130819
  Receipt Date: 20130819
  Transmission Date: 20140515
  Serious: Yes (Other)
  Sender: FDA-Public Use
  Company Number: PHHY2013US087051

PATIENT
  Age: 62 Year
  Sex: Female

DRUGS (2)
  1. ZOLPIDEM [Suspect]
     Indication: INSOMNIA
     Dosage: 10 MG NIGHTLY
  2. PAROXETINE [Interacting]
     Indication: ANXIETY
     Dosage: 10 MG DAILY

REACTIONS (9)
  - Delirium [Unknown]
  - Self injurious behaviour [Unknown]
  - Drug interaction [Unknown]
  - Major depression [Unknown]
  - Aggression [Unknown]
  - Feeling abnormal [Unknown]
  - Insomnia [Unknown]
  - Intentional overdose [Unknown]
  - Drug ineffective [Unknown]
